FAERS Safety Report 9306808 (Version 2)
Quarter: 2013Q3

REPORT INFORMATION
  Report Type: Spontaneous
  Country: US (occurrence: None)
  Receive Date: 20130322
  Receipt Date: 20130903
  Transmission Date: 20140515
  Serious: Yes (Other)
  Sender: FDA-Public Use
  Company Number: 2012SGN00477

PATIENT
  Age: 26 Year
  Sex: Male
  Weight: 74.5 kg

DRUGS (16)
  1. BRENTUXIMAB VEDOTIN [Suspect]
     Indication: HODGKIN^S DISEASE
     Dosage: 1.8 MG/KG, Q21D, INTRAVENOUS
     Route: 042
     Dates: start: 20120608, end: 20120919
  2. ACYCLOVIR (ACYCLOVIR) [Concomitant]
  3. BACTRIM [Concomitant]
  4. CLOTRIMAZOLE (CLOTRIMAZOLE) [Concomitant]
  5. DILTIAZEM [Concomitant]
  6. FOLIC ACID (FOLIC ACID) [Concomitant]
  7. LIDOCAINE (LIDOCAINE HYDROCHLORIDE) [Concomitant]
  8. MAGNESIUM OXIDE (MAGNESIUM OXIDE) [Concomitant]
  9. MULTIVITAMIN (VITAMINS NOS) [Concomitant]
  10. NYSTATIN (NYSTATIN) [Concomitant]
  11. OMEPRAZOLE (OMEPRAZOLE) [Concomitant]
  12. PHOSPHORUS (PHOSPHORUS) [Concomitant]
  13. POTASSIUM CHLORIDE (POTASSIUM CHLORIDE) [Concomitant]
  14. PREDNISONE (PREDNISONE) [Concomitant]
  15. ZOFRAN (ONDANSETRON) [Concomitant]
  16. COLCHICINE (COLCHICINE) [Concomitant]

REACTIONS (6)
  - Urethral papilloma [None]
  - Anogenital warts [None]
  - Papilloma viral infection [None]
  - Pollakiuria [None]
  - Dysuria [None]
  - Penile wart [None]
